FAERS Safety Report 5032936-5 (Version None)
Quarter: 2006Q2

REPORT INFORMATION
  Report Type: 
  Country: None (occurrence: None)
  Receive Date: 20060515
  Receipt Date: 20060403
  Transmission Date: 20061013
  Serious: No
  Sender: FDA-Public Use
  Company Number: S06-USA-00966-01

PATIENT
  Sex: Female

DRUGS (2)
  1. NAMENDA [Suspect]
     Dates: start: 20060313
  2. ARICEPT [Concomitant]

REACTIONS (2)
  - AMNESIA [None]
  - CONFUSIONAL STATE [None]
